FAERS Safety Report 7423035-3 (Version None)
Quarter: 2011Q2

REPORT INFORMATION
  Report Type: 
  Country: None (occurrence: None)
  Receive Date: 20110414
  Receipt Date: 20110414
  Transmission Date: 20111010
  Serious: Yes (Hospitalization)
  Sender: FDA-Public Use
  Company Number: None

PATIENT
  Sex: Female
  Weight: 74 kg

DRUGS (2)
  1. REVLIMID [Suspect]
     Dosage: 50MG QD PO
     Route: 048
  2. AZACITIDINE [Suspect]
     Indication: ACUTE MYELOID LEUKAEMIA
     Dosage: 75 MG/M2 QD IV
     Route: 042

REACTIONS (5)
  - LUNG NEOPLASM [None]
  - STAPHYLOCOCCAL INFECTION [None]
  - NEOPLASM MALIGNANT [None]
  - INGROWING NAIL [None]
  - FEBRILE NEUTROPENIA [None]
